FAERS Safety Report 5091799-2 (Version None)
Quarter: 2006Q3

REPORT INFORMATION
  Report Type: 
  Country: None (occurrence: None)
  Receive Date: 20060829
  Receipt Date: 20060601
  Transmission Date: 20061208
  Serious: Yes (Other)
  Sender: FDA-Public Use
  Company Number: US-BRISTOL-MYERS SQUIBB COMPANY-13398854

PATIENT
  Age: 71 Year
  Sex: Male

DRUGS (1)
  1. ERBITUX [Suspect]
     Indication: GASTRIC CANCER
     Dosage: 800 MG.
     Route: 042
     Dates: start: 20060601, end: 20060601

REACTIONS (1)
  - ANAPHYLACTIC REACTION [None]
